FAERS Safety Report 23665099 (Version 3)
Quarter: 2025Q1

REPORT INFORMATION
  Report Type: Spontaneous
  Country: US (occurrence: US)
  Receive Date: 20240322
  Receipt Date: 20250317
  Transmission Date: 20250409
  Serious: Yes (Other)
  Sender: PFIZER
  Company Number: US-PFIZER INC-PV202400038930

PATIENT
  Age: 61 Year
  Sex: Female

DRUGS (1)
  1. XELJANZ XR [Suspect]
     Active Substance: TOFACITINIB CITRATE
     Route: 048

REACTIONS (6)
  - Rheumatoid arthritis [Unknown]
  - Product dose omission issue [Unknown]
  - Disease recurrence [Unknown]
  - Fatigue [Unknown]
  - Condition aggravated [Unknown]
  - Rhinorrhoea [Recovering/Resolving]
